FAERS Safety Report 9859820 (Version 2)
Quarter: 2014Q1

REPORT INFORMATION
  Report Type: Spontaneous
  Country: US (occurrence: US)
  Receive Date: 20140131
  Receipt Date: 20140311
  Transmission Date: 20141002
  Serious: No
  Sender: FDA-Public Use
  Company Number: US-009507513-1401USA010256

PATIENT
  Age: 67 Year
  Sex: Male
  Weight: 83.9 kg

DRUGS (2)
  1. CORICIDIN HBP DAY [Suspect]
     Indication: RHINORRHOEA
     Dosage: UNK, Q6H
     Route: 048
     Dates: start: 20140130, end: 20140201
  2. CORICIDIN HBP DAY [Suspect]
     Indication: COUGH

REACTIONS (6)
  - Epistaxis [Unknown]
  - Sinusitis [Not Recovered/Not Resolved]
  - Nasal dryness [Unknown]
  - Dry mouth [Unknown]
  - Ageusia [Not Recovered/Not Resolved]
  - Drug ineffective [Unknown]
